FAERS Safety Report 16676255 (Version 2)
Quarter: 2019Q4

REPORT INFORMATION
  Report Type: Report from Study
  Country: US (occurrence: US)
  Receive Date: 20190807
  Receipt Date: 20191007
  Transmission Date: 20200122
  Serious: Yes (Other)
  Sender: FDA-Public Use
  Company Number: US-BRISTOL-MYERS SQUIBB COMPANY-BMS-2019-077137

PATIENT
  Sex: Male

DRUGS (2)
  1. NIVOLUMAB [Suspect]
     Active Substance: NIVOLUMAB
     Indication: HEAD AND NECK CANCER
     Dosage: UNK UNK, Q4WK
     Route: 042
  2. DULCOLAX BALANCE [Concomitant]
     Active Substance: POLYETHYLENE GLYCOL 3350
     Indication: PRODUCT USED FOR UNKNOWN INDICATION
     Dosage: UNK
     Route: 065

REACTIONS (26)
  - Neuropathy peripheral [Not Recovered/Not Resolved]
  - Ear pain [Unknown]
  - Myalgia [Unknown]
  - Fatigue [Unknown]
  - Erectile dysfunction [Unknown]
  - Somnolence [Not Recovered/Not Resolved]
  - Constipation [Recovered/Resolved]
  - Pyrexia [Not Recovered/Not Resolved]
  - Weight increased [Unknown]
  - Swelling face [Unknown]
  - Asthenia [Unknown]
  - Nausea [Not Recovered/Not Resolved]
  - Cough [Unknown]
  - Tenderness [Unknown]
  - Muscle atrophy [Not Recovered/Not Resolved]
  - Mood swings [Recovered/Resolved]
  - Headache [Not Recovered/Not Resolved]
  - Appetite disorder [Not Recovered/Not Resolved]
  - Memory impairment [Unknown]
  - Diarrhoea [Recovered/Resolved]
  - Dizziness [Unknown]
  - Eye pruritus [Not Recovered/Not Resolved]
  - Stress [Unknown]
  - Pollakiuria [Not Recovered/Not Resolved]
  - Depression [Unknown]
  - Seasonal allergy [Not Recovered/Not Resolved]
